FAERS Safety Report 14212426 (Version 1)
Quarter: 2017Q4

REPORT INFORMATION
  Report Type: Spontaneous
  Country: US (occurrence: None)
  Receive Date: 20171121
  Receipt Date: 20171121
  Transmission Date: 20180321
  Serious: No
  Sender: FDA-Public Use
  Company Number: None

PATIENT
  Age: 59 Year
  Sex: Male
  Weight: 79 kg

DRUGS (3)
  1. DIPHENHYDRAMINE/IBUPROFEN [Suspect]
     Active Substance: DIPHENHYDRAMINE HYDROCHLORIDE\IBUPROFEN
     Indication: DISCOMFORT
     Route: 048
     Dates: start: 20170801, end: 20171025
  2. GLECAPREVIR/PIBRENTASVIR [Suspect]
     Active Substance: GLECAPREVIR\PIBRENTASVIR
     Indication: HEPATITIS C
     Route: 048
     Dates: start: 20171022
  3. DIPHENHYDRAMINE/IBUPROFEN [Suspect]
     Active Substance: DIPHENHYDRAMINE HYDROCHLORIDE\IBUPROFEN
     Indication: INSOMNIA
     Route: 048
     Dates: start: 20170801, end: 20171025

REACTIONS (4)
  - Feeling abnormal [None]
  - Thirst [None]
  - Asthenia [None]
  - Somnolence [None]

NARRATIVE: CASE EVENT DATE: 20171024
